FAERS Safety Report 20635445 (Version 2)
Quarter: 2022Q2

REPORT INFORMATION
  Report Type: Spontaneous
  Country: US (occurrence: US)
  Receive Date: 20220325
  Receipt Date: 20220421
  Transmission Date: 20220721
  Serious: Yes (Other)
  Sender: FDA-Public Use
  Company Number: US-JNJFOC-20220341297

PATIENT
  Age: 8 Decade
  Sex: Female

DRUGS (2)
  1. OPSUMIT [Suspect]
     Active Substance: MACITENTAN
     Indication: Pulmonary hypertension
     Dosage: 30 PER MONTH
     Route: 048
     Dates: start: 2021
  2. SILDENAFIL [Suspect]
     Active Substance: SILDENAFIL
     Indication: Pulmonary hypertension
     Dosage: 90 PER MONTH
     Route: 048
     Dates: start: 2021

REACTIONS (2)
  - Cataract [Unknown]
  - Visual impairment [Unknown]
